FAERS Safety Report 13052713 (Version 2)
Quarter: 2017Q1

REPORT INFORMATION
  Report Type: Spontaneous
  Country: JP (occurrence: JP)
  Receive Date: 20161221
  Receipt Date: 20170131
  Transmission Date: 20170428
  Serious: Yes (Other)
  Sender: FDA-Public Use
  Company Number: GXJP2016JP001884

PATIENT
  Age: 73 Year
  Sex: Female

DRUGS (4)
  1. CEFTRIAXONE NA FOR INTRAVENOUS INJECTION [Suspect]
     Active Substance: CEFTRIAXONE
     Indication: HAEMOPHILUS INFECTION
     Dosage: 2 G, BID
     Route: 042
  2. LEVOFLOXACIN. [Suspect]
     Active Substance: LEVOFLOXACIN
     Indication: ARTHRITIS BACTERIAL
  3. CEFTRIAXONE NA FOR INTRAVENOUS INJECTION [Suspect]
     Active Substance: CEFTRIAXONE
     Indication: MENINGITIS BACTERIAL
  4. LEVOFLOXACIN. [Suspect]
     Active Substance: LEVOFLOXACIN
     Indication: HAEMOPHILUS INFECTION
     Route: 065

REACTIONS (4)
  - Arthritis [Recovering/Resolving]
  - Meningitis [Unknown]
  - Arthritis bacterial [Recovering/Resolving]
  - Drug eruption [Recovering/Resolving]
